APPROVED DRUG PRODUCT: PHENYLEPHRINE HYDROCHLORIDE
Active Ingredient: PHENYLEPHRINE HYDROCHLORIDE
Strength: 50MG/5ML (10MG/ML)
Dosage Form/Route: SOLUTION;INTRAVENOUS
Application: N203826 | Product #002 | TE Code: AP2
Applicant: HIKMA PHARMACEUTICALS USA INC
Approved: Jun 19, 2019 | RLD: Yes | RS: Yes | Type: RX